FAERS Safety Report 19744303 (Version 1)
Quarter: 2021Q3

REPORT INFORMATION
  Report Type: Spontaneous
  Country: GB (occurrence: GB)
  Receive Date: 20210825
  Receipt Date: 20210825
  Transmission Date: 20211014
  Serious: Yes (Hospitalization, Other)
  Sender: FDA-Public Use
  Company Number: GB-ACCORD-236217

PATIENT
  Age: 88 Year
  Sex: Female

DRUGS (12)
  1. BEZAFIBRATE [Concomitant]
     Active Substance: BEZAFIBRATE
     Dosage: MORNING
  2. SOLIFENACIN/SOLIFENACIN SUCCINATE [Concomitant]
     Active Substance: SOLIFENACIN SUCCINATE
     Dosage: MORNING
  3. APIXABAN [Suspect]
     Active Substance: APIXABAN
     Indication: ATRIAL FIBRILLATION
     Dosage: 5MG BD
  4. ATORVASTATIN/ATORVASTATIN CALCIUM [Suspect]
     Active Substance: ATORVASTATIN CALCIUM
     Indication: PRODUCT USED FOR UNKNOWN INDICATION
     Dosage: 80MG ON,AT NIGHT
  5. CHEMYDUR XL [Concomitant]
     Active Substance: ISOSORBIDE MONONITRATE
     Dosage: MORNING
  6. ASTRAZENECA COVID?19 VACCINE [Concomitant]
     Active Substance: AZD-1222
     Dosage: DOSE 1
  7. FUROSEMIDE. [Concomitant]
     Active Substance: FUROSEMIDE
     Dosage: MORNING
  8. ASPIRIN. [Suspect]
     Active Substance: ASPIRIN
     Indication: PRODUCT USED FOR UNKNOWN INDICATION
     Dosage: 75MG OD
  9. ADCAL?D3 [Concomitant]
     Active Substance: CALCIUM CARBONATE\CHOLECALCIFEROL
     Dosage: MORNING AND NIGHT
  10. DONEPEZIL/DONEPEZIL HYDROCHLORIDE [Concomitant]
     Active Substance: DONEPEZIL HYDROCHLORIDE
     Dosage: NIGHT
  11. ASTRAZENECA COVID?19 VACCINE [Concomitant]
     Active Substance: AZD-1222
     Dosage: DOSE 2
  12. BISOPROLOL [Concomitant]
     Active Substance: BISOPROLOL
     Dosage: MORNING

REACTIONS (3)
  - Eyelid ptosis [Unknown]
  - Headache [Unknown]
  - Thalamus haemorrhage [Unknown]
